FAERS Safety Report 14175276 (Version 1)
Quarter: 2017Q4

REPORT INFORMATION
  Report Type: Spontaneous
  Country: US (occurrence: US)
  Receive Date: 20171109
  Receipt Date: 20171109
  Transmission Date: 20180321
  Serious: No
  Sender: FDA-Public Use
  Company Number: US-SA-2017SA144054

PATIENT
  Age: 56 Year
  Sex: Female

DRUGS (3)
  1. XYZAL ALLERGY 24HR [Suspect]
     Active Substance: LEVOCETIRIZINE DIHYDROCHLORIDE
     Indication: EUSTACHIAN TUBE DYSFUNCTION
     Route: 065
     Dates: start: 201707, end: 201707
  2. XYZAL ALLERGY 24HR [Suspect]
     Active Substance: LEVOCETIRIZINE DIHYDROCHLORIDE
     Indication: EUSTACHIAN TUBE DYSFUNCTION
     Route: 065
     Dates: start: 201707, end: 201707
  3. XYZAL ALLERGY 24HR [Suspect]
     Active Substance: LEVOCETIRIZINE DIHYDROCHLORIDE
     Indication: EUSTACHIAN TUBE DYSFUNCTION
     Route: 065
     Dates: start: 201707, end: 201707

REACTIONS (3)
  - Fatigue [Unknown]
  - Product use issue [Unknown]
  - Somnolence [Unknown]

NARRATIVE: CASE EVENT DATE: 201707
